FAERS Safety Report 5298575-6 (Version None)
Quarter: 2007Q2

REPORT INFORMATION
  Report Type: 
  Country: None (occurrence: None)
  Receive Date: 20070409
  Receipt Date: 20070328
  Transmission Date: 20071010
  Serious: Yes (Other)
  Sender: FDA-Public Use
  Company Number: 2007313454

PATIENT
  Age: 87 Year
  Sex: Male
  Weight: 72.6 kg

DRUGS (5)
  1. BENADRYL [Suspect]
     Indication: INSOMNIA
     Dosage: UNSPECIFIED, ORAL
     Route: 048
     Dates: start: 19870101
  2. ZITHROMAX [Suspect]
     Indication: BRONCHITIS
     Dosage: 250 MG DAILY (250 MG), ORAL
     Route: 048
     Dates: start: 20070324
  3. HYDROCHLOROTHIAZIDE [Concomitant]
  4. ATENOLOL [Concomitant]
  5. ALLOPURINOL [Concomitant]

REACTIONS (6)
  - BRONCHITIS [None]
  - CONFUSIONAL STATE [None]
  - DISORIENTATION [None]
  - HALLUCINATION, AUDITORY [None]
  - ILLUSION [None]
  - PNEUMONIA [None]
